FAERS Safety Report 25128820 (Version 1)
Quarter: 2025Q1

REPORT INFORMATION
  Report Type: Spontaneous
  Country: SG (occurrence: SG)
  Receive Date: 20250327
  Receipt Date: 20250327
  Transmission Date: 20250409
  Serious: Yes (Death, Other)
  Sender: AMGEN
  Company Number: SG-AMGEN-SGPSP2025055947

PATIENT
  Age: 43 Year
  Sex: Female

DRUGS (8)
  1. BEVACIZUMAB [Suspect]
     Active Substance: BEVACIZUMAB
     Indication: Adenocarcinoma of the cervix
     Route: 065
  2. BEVACIZUMAB [Suspect]
     Active Substance: BEVACIZUMAB
     Indication: Malignant peritoneal neoplasm
  3. PACLITAXEL [Concomitant]
     Active Substance: PACLITAXEL
     Indication: Adenocarcinoma of the cervix
     Route: 065
  4. PACLITAXEL [Concomitant]
     Active Substance: PACLITAXEL
     Indication: Malignant peritoneal neoplasm
  5. CARBOPLATIN [Concomitant]
     Active Substance: CARBOPLATIN
     Indication: Adenocarcinoma of the cervix
     Route: 065
  6. CARBOPLATIN [Concomitant]
     Active Substance: CARBOPLATIN
     Indication: Malignant peritoneal neoplasm
  7. TISOTUMAB VEDOTIN [Concomitant]
     Active Substance: TISOTUMAB VEDOTIN
     Indication: Adenocarcinoma of the cervix
     Route: 065
  8. TISOTUMAB VEDOTIN [Concomitant]
     Active Substance: TISOTUMAB VEDOTIN
     Indication: Malignant peritoneal neoplasm

REACTIONS (2)
  - Death [Fatal]
  - Adenocarcinoma of the cervix [Unknown]
